FAERS Safety Report 5762130-1 (Version None)
Quarter: 2008Q2

REPORT INFORMATION
  Report Type: 
  Country: None (occurrence: None)
  Receive Date: 20080604
  Receipt Date: 20080519
  Transmission Date: 20081010
  Serious: Yes (Other)
  Sender: FDA-Public Use
  Company Number: 2008EU000934

PATIENT
  Age: 53 Year
  Sex: Female

DRUGS (21)
  1. PROGRAF [Suspect]
     Indication: LIVER TRANSPLANT
     Dosage: 2 MG, BID,
     Dates: start: 20080418, end: 20080427
  2. AMOXICILLIN TRIHYDRATE [Concomitant]
  3. AZATHIOPRINE [Concomitant]
  4. CIPRO [Concomitant]
  5. CITALOPRAM (CITALOPRAM HYDROCHLORIDE) [Concomitant]
  6. COTRIM [Concomitant]
  7. DOMPERIDONE (DOMPERIDONE) [Concomitant]
  8. FLUCONAZOLE [Concomitant]
  9. HYDROCORTISONE (HYDROCORTISONE HYDROGEN SUCCINATE) [Concomitant]
  10. INSULIN (INSULIN) [Concomitant]
  11. IRBESARTAN [Concomitant]
  12. NULYTELY [Concomitant]
  13. NORFLOXACIN [Concomitant]
  14. OMEPRAZOLE [Concomitant]
  15. ACETAMINOPHEN [Concomitant]
  16. PREDNISOLONE [Concomitant]
  17. QUININE (QUININE) [Concomitant]
  18. RANITIDINE HCL [Concomitant]
  19. SPIRONOLACTONE [Concomitant]
  20. THIAMINE (THIAMINE HYDROCHLORIDE) [Concomitant]
  21. TRAMADOL HCL [Concomitant]

REACTIONS (9)
  - AGITATION [None]
  - CONFUSIONAL STATE [None]
  - DYSKINESIA [None]
  - DYSTONIA [None]
  - HALLUCINATION, VISUAL [None]
  - MUSCLE SPASMS [None]
  - MYOCLONUS [None]
  - TREMOR [None]
  - WHITE BLOOD CELL COUNT INCREASED [None]
